FAERS Safety Report 24210038 (Version 1)
Quarter: 2024Q3

REPORT INFORMATION
  Report Type: Other
  Country: TR (occurrence: TR)
  Receive Date: 20240814
  Receipt Date: 20240814
  Transmission Date: 20241017
  Serious: Yes (Hospitalization, Other)
  Sender: APTAPHARMA
  Company Number: TR-AptaPharma Inc.-2160408

PATIENT
  Age: 81 Year
  Sex: Male

DRUGS (1)
  1. SILDENAFIL FOR ORAL SUSPENSION [Suspect]
     Active Substance: SILDENAFIL CITRATE
     Indication: Product used for unknown indication
     Route: 065

REACTIONS (2)
  - Pulmonary embolism [Recovered/Resolved]
  - Accidental exposure to product [Unknown]
